FAERS Safety Report 4544246-0 (Version None)
Quarter: 2004Q4

REPORT INFORMATION
  Report Type: 
  Country: None (occurrence: None)
  Receive Date: 20041230
  Receipt Date: 20041016
  Transmission Date: 20050328
  Serious: Yes (Hospitalization)
  Sender: FDA-Public Use
  Company Number: 105682ISR

PATIENT
  Age: 69 Year
  Sex: Male

DRUGS (6)
  1. CISPLATIN [Suspect]
     Indication: LUNG NEOPLASM MALIGNANT
     Dosage: 150 MILLIGRAM, INTRAVENOUS (NOS)
     Route: 042
     Dates: start: 20041012, end: 20041012
  2. ALDESLEUKIN [Suspect]
     Indication: LUNG NEOPLASM MALIGNANT
     Dosage: SUBCUTANEOUS
     Route: 058
     Dates: start: 20041013, end: 20041015
  3. ALDESLEUKIN [Suspect]
     Indication: LUNG NEOPLASM MALIGNANT
     Dosage: SUBCUTANEOUS
     Route: 058
     Dates: start: 20041019, end: 20041021
  4. GEMCITABINE [Suspect]
     Indication: LUNG NEOPLASM MALIGNANT
     Dosage: 2000 MILLIGRAM INTRAVENOUS (NOS)
     Route: 042
     Dates: start: 20041011, end: 20041011
  5. GEMCITABINE [Suspect]
     Indication: LUNG NEOPLASM MALIGNANT
     Dosage: 2000 MILLIGRAM INTRAVENOUS (NOS)
     Route: 042
     Dates: start: 20041018, end: 20041018
  6. ENALAPRIL MALEATE [Concomitant]

REACTIONS (4)
  - BRONCHOPNEUMONIA [None]
  - LEUKOPENIA [None]
  - PYREXIA [None]
  - THROMBOCYTOPENIA [None]
